FAERS Safety Report 10152951 (Version 1)
Quarter: 2014Q2

REPORT INFORMATION
  Report Type: Spontaneous
  Country: GR (occurrence: GR)
  Receive Date: 20140505
  Receipt Date: 20140505
  Transmission Date: 20141212
  Serious: Yes (Other)
  Sender: FDA-Public Use
  Company Number: GR-PFIZER INC-2014118372

PATIENT
  Sex: Male

DRUGS (4)
  1. DOXORUBICIN HCL [Suspect]
     Indication: HODGKIN^S DISEASE
     Dosage: UNK
  2. BLEOMYCIN [Suspect]
     Indication: HODGKIN^S DISEASE
     Dosage: UNK
  3. VINBLASTINE [Suspect]
     Indication: HODGKIN^S DISEASE
     Dosage: UNK
  4. DACARBAZINE [Suspect]
     Indication: HODGKIN^S DISEASE
     Dosage: UNK

REACTIONS (3)
  - Second primary malignancy [Recovered/Resolved]
  - Osteosarcoma [Recovered/Resolved]
  - Cardiotoxicity [Unknown]
